FAERS Safety Report 24105610 (Version 3)
Quarter: 2024Q3

REPORT INFORMATION
  Report Type: Spontaneous
  Country: US (occurrence: US)
  Receive Date: 20240717
  Receipt Date: 20240729
  Transmission Date: 20241016
  Serious: Yes (Disabling, Other)
  Sender: SANOFI AVENTIS
  Company Number: US-SANOFI-02129032

PATIENT
  Age: 5 Year
  Sex: Male
  Weight: 43.999 kg

DRUGS (1)
  1. LUMIZYME [Suspect]
     Active Substance: ALGLUCOSIDASE ALFA
     Indication: Glycogen storage disease type II
     Dosage: 26 DF (VIALS), QOW
     Route: 065
     Dates: start: 2020

REACTIONS (5)
  - Disability [Unknown]
  - Hepatic enzyme increased [Unknown]
  - Incorrect product administration duration [Unknown]
  - Drug monitoring procedure not performed [Unknown]
  - Inadequate aseptic technique in use of product [Unknown]

NARRATIVE: CASE EVENT DATE: 20200101
